FAERS Safety Report 21315572 (Version 1)
Quarter: 2022Q3

REPORT INFORMATION
  Report Type: Spontaneous
  Country: IT (occurrence: IT)
  Receive Date: 20220909
  Receipt Date: 20220909
  Transmission Date: 20221027
  Serious: Yes (Hospitalization, Other)
  Sender: FDA-Public Use
  Company Number: IT-SA-SAC20220908000251

PATIENT
  Age: 74 Year
  Sex: Male

DRUGS (1)
  1. DUPIXENT [Suspect]
     Active Substance: DUPILUMAB
     Indication: Asthma
     Dosage: 300 MG
     Route: 058

REACTIONS (6)
  - Dyspnoea [Unknown]
  - Cough [Unknown]
  - Eosinophilic pneumonia [Unknown]
  - Pleural thickening [Unknown]
  - Headache [Unknown]
  - Trigeminal neuralgia [Unknown]
